FAERS Safety Report 9527575 (Version 1)
Quarter: 2013Q1

REPORT INFORMATION
  Report Type: Spontaneous
  Country: US (occurrence: None)
  Receive Date: 20130314
  Receipt Date: 20130314
  Transmission Date: 20140127
  Serious: No
  Sender: FDA-Public Use
  Company Number: 1212USA001898

PATIENT
  Sex: Female

DRUGS (3)
  1. PEGINTERFERON ALFA-2A (PEGINTERFERON ALFA-2A) [Suspect]
     Indication: HEPATITIS C
  2. RIBAVIRIN (RIBAVIRIN) CAPSULE [Suspect]
     Indication: HEPATITIS C
  3. VICTRELIS (BOCEPREVIR)CAPSULE [Suspect]
     Indication: HEPATITIS C

REACTIONS (2)
  - Platelet count decreased [None]
  - White blood cell count decreased [None]
